FAERS Safety Report 6159231-5 (Version None)
Quarter: 2009Q2

REPORT INFORMATION
  Report Type: 
  Country: None (occurrence: None)
  Receive Date: 20090417
  Receipt Date: 20090407
  Transmission Date: 20091009
  Serious: Yes (Other)
  Sender: FDA-Public Use
  Company Number: GB-PFIZER INC-2009194328

PATIENT

DRUGS (1)
  1. XALATAN [Suspect]
     Indication: OCULAR HYPERTENSION

REACTIONS (1)
  - PERITONITIS VIRAL [None]
